FAERS Safety Report 8939980 (Version 3)
Quarter: 2015Q2

REPORT INFORMATION
  Report Type: Spontaneous
  Country: US (occurrence: US)
  Receive Date: 20121203
  Receipt Date: 20150410
  Transmission Date: 20150821
  Serious: Yes (Hospitalization, Disabling)
  Sender: FDA-Public Use
  Company Number: US-BAYER-2012-125395

PATIENT
  Age: 49 Year
  Sex: Female
  Weight: 76.64 kg

DRUGS (11)
  1. YASMIN [Suspect]
     Active Substance: DROSPIRENONE\ETHINYL ESTRADIOL
     Indication: MENSTRUATION IRREGULAR
     Dosage: UNK
     Dates: start: 2010, end: 20111121
  2. PROMETRIUM [Concomitant]
     Active Substance: PROGESTERONE
     Dosage: 200 MG, 1 CAPSULE EVERY EVENING FOR 14 DAYS A MONTH
     Route: 048
  3. AUGMENTIN [Concomitant]
     Active Substance: AMOXICILLIN\CLAVULANATE POTASSIUM
  4. FLUCONAZOLE. [Concomitant]
     Active Substance: FLUCONAZOLE
     Dosage: 150 MG, UNK
     Route: 048
  5. CELEXA [Concomitant]
     Active Substance: CITALOPRAM HYDROBROMIDE
     Dosage: 20 MG, 1 TABLET EVERY DAY
     Route: 048
  6. IBUPROFEN. [Concomitant]
     Active Substance: IBUPROFEN
  7. AMOXICILLIN W/CLAVULANIC ACID [Concomitant]
     Active Substance: AMOXICILLIN\CLAVULANIC ACID
     Dosage: 875 MG, 1 TABLET TWICE DAILY FOR 10 DAYS
     Route: 048
  8. ZARAH [Suspect]
     Active Substance: DROSPIRENONE\ETHINYL ESTRADIOL
     Indication: MENSTRUATION IRREGULAR
     Dosage: UNK
     Dates: start: 201011, end: 20111121
  9. ADVIL [Concomitant]
     Active Substance: IBUPROFEN
     Dosage: 3 PILLS EVERY 4 TO 6 HOURS
     Route: 048
  10. DIFLUCAN [Concomitant]
     Active Substance: FLUCONAZOLE
  11. OXYCODONE [Concomitant]
     Active Substance: OXYCODONE

REACTIONS (4)
  - Deformity [None]
  - Pain [None]
  - Injury [None]
  - Pulmonary embolism [None]

NARRATIVE: CASE EVENT DATE: 201109
